FAERS Safety Report 8252989-0 (Version None)
Quarter: 2012Q2

REPORT INFORMATION
  Report Type: 
  Country: None (occurrence: None)
  Receive Date: 20120402
  Receipt Date: 20120330
  Transmission Date: 20120825
  Serious: Yes (Hospitalization)
  Sender: FDA-Public Use
  Company Number: US-MERCK-1203USA01152

PATIENT
  Age: 49 Year
  Sex: Male

DRUGS (4)
  1. GLIPIZIDE [Concomitant]
     Route: 065
  2. JANUVIA [Suspect]
     Indication: DIABETES MELLITUS
     Route: 048
     Dates: start: 20070101, end: 20120101
  3. ACTOS [Concomitant]
     Route: 065
  4. JANUVIA [Suspect]
     Route: 048
     Dates: start: 20120201

REACTIONS (2)
  - LOCALISED INFECTION [None]
  - BLOOD GLUCOSE INCREASED [None]
